FAERS Safety Report 5516623-2 (Version None)
Quarter: 2007Q4

REPORT INFORMATION
  Report Type: 
  Country: None (occurrence: None)
  Receive Date: 20071114
  Receipt Date: 20070329
  Transmission Date: 20080405
  Serious: No
  Sender: FDA-Public Use
  Company Number: A0644988A

PATIENT
  Age: 58 Year
  Sex: Male

DRUGS (1)
  1. COMMIT [Suspect]
     Dates: start: 20070316

REACTIONS (3)
  - COUGH [None]
  - DIARRHOEA [None]
  - INCREASED UPPER AIRWAY SECRETION [None]
